FAERS Safety Report 11006375 (Version 1)
Quarter: 2015Q2

REPORT INFORMATION
  Report Type: Spontaneous
  Country: US (occurrence: US)
  Receive Date: 20150409
  Receipt Date: 20150409
  Transmission Date: 20150821
  Serious: No
  Sender: FDA-Public Use
  Company Number: US-ALLERGAN-1416584US

PATIENT
  Age: 55 Year
  Sex: Female

DRUGS (1)
  1. LATISSE [Suspect]
     Active Substance: BIMATOPROST
     Indication: PRODUCT USED FOR UNKNOWN INDICATION
     Dosage: 1 UNK, UNK
     Route: 061
     Dates: start: 201404

REACTIONS (2)
  - Wrong technique in drug usage process [Unknown]
  - Mydriasis [Recovered/Resolved]

NARRATIVE: CASE EVENT DATE: 20140719
